FAERS Safety Report 9478260 (Version 1)
Quarter: 2013Q3

REPORT INFORMATION
  Report Type: Spontaneous
  Country: US (occurrence: US)
  Receive Date: 20130827
  Receipt Date: 20130827
  Transmission Date: 20140515
  Serious: No
  Sender: FDA-Public Use
  Company Number: US-JNJFOC-20130808389

PATIENT
  Sex: Male
  Weight: 97.52 kg

DRUGS (5)
  1. DURAGESIC [Suspect]
     Indication: PAIN
     Route: 062
  2. DURAGESIC [Suspect]
     Indication: PAIN
     Route: 062
     Dates: start: 2013
  3. LISINOPRIL [Concomitant]
     Indication: BLOOD CHOLESTEROL
     Route: 065
     Dates: start: 2011
  4. ZOLOFT [Concomitant]
     Indication: DEPRESSION
     Route: 048
     Dates: start: 2011
  5. OXYCODONE [Concomitant]
     Dosage: 3-4 TIMES DAILY
     Route: 048
     Dates: start: 2011

REACTIONS (6)
  - Therapy cessation [Unknown]
  - Withdrawal syndrome [Recovered/Resolved]
  - Wrong technique in drug usage process [Unknown]
  - Hyperhidrosis [Unknown]
  - Product quality issue [Unknown]
  - Wrong technique in drug usage process [Unknown]
